FAERS Safety Report 13290725 (Version 1)
Quarter: 2017Q1

REPORT INFORMATION
  Report Type: Spontaneous
  Country: US (occurrence: US)
  Receive Date: 20170302
  Receipt Date: 20170302
  Transmission Date: 20170428
  Serious: No
  Sender: FDA-Public Use
  Company Number: US-TEVA-743592ACC

PATIENT
  Age: 69 Year
  Sex: Female

DRUGS (9)
  1. ASPIRIN. [Concomitant]
     Active Substance: ASPIRIN
  2. COPAXONE [Suspect]
     Active Substance: GLATIRAMER ACETATE
     Indication: MULTIPLE SCLEROSIS
     Route: 058
     Dates: start: 201611
  3. NITROFURANTOIN. [Concomitant]
     Active Substance: NITROFURANTOIN
  4. VITAMIN D [Concomitant]
     Active Substance: CHOLECALCIFEROL
  5. FOLIC ACID. [Concomitant]
     Active Substance: FOLIC ACID
  6. LISINOPRIL. [Concomitant]
     Active Substance: LISINOPRIL
  7. ATORVASTATIN [Concomitant]
     Active Substance: ATORVASTATIN
  8. CARVEDILOL. [Concomitant]
     Active Substance: CARVEDILOL
  9. VITAMIN B12 [Concomitant]
     Active Substance: CYANOCOBALAMIN

REACTIONS (1)
  - Injection site reaction [Unknown]

NARRATIVE: CASE EVENT DATE: 201701
